FAERS Safety Report 25066083 (Version 2)
Quarter: 2025Q2

REPORT INFORMATION
  Report Type: Spontaneous
  Country: US (occurrence: US)
  Receive Date: 20250312
  Receipt Date: 20250417
  Transmission Date: 20250716
  Serious: No
  Sender: CSL BEHRING
  Company Number: US-BEH-2025197787

PATIENT
  Sex: Male

DRUGS (5)
  1. HIZENTRA [Suspect]
     Active Substance: HUMAN IMMUNOGLOBULIN G
     Indication: Myasthenia gravis
     Dosage: 1 G (1 GM/5ML: INFUSE 47 GRAMS (235 ML) UNDER THE SKIN
     Route: 058
     Dates: start: 20241207
  2. HIZENTRA [Suspect]
     Active Substance: HUMAN IMMUNOGLOBULIN G
     Dosage: 2 G (2 GM/10 ML: INFUSE 47 GRAMS (235 ML) UNDER THE SKIN
     Route: 058
     Dates: start: 20241207
  3. HIZENTRA [Suspect]
     Active Substance: HUMAN IMMUNOGLOBULIN G
     Dosage: 4 G (4 GM/20ML: INFUSE 47 GRAMS (235 ML) UNDER THE SKIN
     Route: 058
     Dates: start: 20241207
  4. HIZENTRA [Suspect]
     Active Substance: HUMAN IMMUNOGLOBULIN G
     Dosage: 10 G (10 GM/50ML: INFUSE 47 GRAMS (235 ML) UNDER THE SKIN
     Route: 058
     Dates: start: 20241207
  5. MYCOPHENOLIC ACID [Concomitant]
     Active Substance: MYCOPHENOLIC ACID

REACTIONS (5)
  - Illness [Not Recovered/Not Resolved]
  - Malaise [Not Recovered/Not Resolved]
  - Therapy interrupted [Not Recovered/Not Resolved]
  - Product dose omission in error [Not Recovered/Not Resolved]
  - Off label use [Unknown]
